FAERS Safety Report 13739581 (Version 1)
Quarter: 2017Q3

REPORT INFORMATION
  Report Type: Spontaneous
  Country: BR (occurrence: BR)
  Receive Date: 20170710
  Receipt Date: 20170710
  Transmission Date: 20171127
  Serious: Yes (Other)
  Sender: FDA-Public Use
  Company Number: PHHY2012BR115334

PATIENT
  Age: 68 Year
  Sex: Female

DRUGS (4)
  1. HYDERGINE [Suspect]
     Active Substance: ERGOLOID MESYLATES
     Indication: BRAIN HYPOXIA
  2. HYDERGINE [Suspect]
     Active Substance: ERGOLOID MESYLATES
     Indication: MEMORY IMPAIRMENT
     Dosage: 6 MG, UNK
     Route: 048
  3. HYDERGINE [Suspect]
     Active Substance: ERGOLOID MESYLATES
     Indication: BRAIN HYPOXIA
  4. HYDERGINE [Suspect]
     Active Substance: ERGOLOID MESYLATES
     Indication: MEMORY IMPAIRMENT
     Dosage: 4.5 MG, UNK
     Route: 048

REACTIONS (4)
  - Memory impairment [Not Recovered/Not Resolved]
  - Drug ineffective [Not Recovered/Not Resolved]
  - Cerebrovascular accident [Recovered/Resolved]
  - Depressed mood [Recovered/Resolved]

NARRATIVE: CASE EVENT DATE: 20121202
